FAERS Safety Report 7406913-0 (Version None)
Quarter: 2011Q2

REPORT INFORMATION
  Report Type: 
  Country: None (occurrence: None)
  Receive Date: 20110411
  Receipt Date: 20110405
  Transmission Date: 20111010
  Serious: Yes (Other)
  Sender: FDA-Public Use
  Company Number: US-PFIZER INC-2011073381

PATIENT
  Sex: Female
  Weight: 113 kg

DRUGS (2)
  1. XALATAN [Suspect]
     Indication: GLAUCOMA
     Dosage: ONE DROP, 1X/DAY, IN LEFT EYE
     Route: 047
     Dates: start: 20030501
  2. COSOPT [Concomitant]
     Dosage: 1 GTT, 2X/DAY IN LEFT EYE
     Route: 047
     Dates: start: 20081027

REACTIONS (2)
  - PERIORBITAL DISORDER [None]
  - EYELID DISORDER [None]
